FAERS Safety Report 5383379-6 (Version None)
Quarter: 2007Q3

REPORT INFORMATION
  Report Type: 
  Country: None (occurrence: None)
  Receive Date: 20070710
  Receipt Date: 20070702
  Transmission Date: 20080115
  Serious: Yes (Hospitalization, Other)
  Sender: FDA-Public Use
  Company Number: US-ASTRAZENECA-2006UW03269

PATIENT
  Age: 42 Year
  Sex: Male
  Weight: 124.1 kg

DRUGS (3)
  1. SEROQUEL [Suspect]
     Indication: DEPRESSION
     Route: 048
     Dates: start: 20030919
  2. SEROQUEL [Suspect]
     Route: 048
     Dates: start: 19990101, end: 20020712
  3. ZYPREXA [Concomitant]
     Dates: start: 20020101, end: 20030101

REACTIONS (5)
  - CARDIAC DISORDER [None]
  - DIABETES MELLITUS [None]
  - DIABETIC COMA [None]
  - DIABETIC KETOACIDOSIS [None]
  - WEIGHT INCREASED [None]
